FAERS Safety Report 16943996 (Version 1)
Quarter: 2019Q4

REPORT INFORMATION
  Report Type: Spontaneous
  Country: GB (occurrence: GB)
  Receive Date: 20191022
  Receipt Date: 20191022
  Transmission Date: 20200122
  Serious: Yes (Hospitalization)
  Sender: FDA-Public Use
  Company Number: GB-TEVA-2019-GB-1123692

PATIENT
  Age: 63 Year

DRUGS (11)
  1. LANSOPRAZOLE. [Suspect]
     Active Substance: LANSOPRAZOLE
     Dosage: 60 MILLIGRAM
     Route: 048
  2. ATENOLOL. [Concomitant]
     Active Substance: ATENOLOL
     Dosage: IN THE MORNING
  3. LANTUS [Concomitant]
     Active Substance: INSULIN GLARGINE
     Dosage: 100UNITS/ML SOLUTION FOR INJECTION 3ML PRE-FILLED SOLOSTAR PEN
  4. NOVORAPID [Concomitant]
     Active Substance: INSULIN ASPART
  5. LISINOPRIL. [Concomitant]
     Active Substance: LISINOPRIL
     Dosage: 10 MILLIGRAM
  6. MORPHGESIC [Concomitant]
     Active Substance: MORPHINE SULFATE
     Dosage: SLOW RELEASE
  7. MORPHGESIC [Concomitant]
     Active Substance: MORPHINE SULFATE
     Dosage: SLOW RELEASE
  8. FUROSEMIDE. [Suspect]
     Active Substance: FUROSEMIDE
     Dosage: IN THE MORNING,40 MILLIGRAM
     Route: 048
  9. CREON [Concomitant]
     Active Substance: PANCRELIPASE AMYLASE\PANCRELIPASE LIPASE\PANCRELIPASE PROTEASE
     Dosage: WHEN REQUIRED
  10. MORPHINE [Concomitant]
     Active Substance: MORPHINE
  11. LISINOPRIL. [Concomitant]
     Active Substance: LISINOPRIL

REACTIONS (3)
  - Hypomagnesaemia [Recovered/Resolved]
  - Hypocalcaemia [Recovered/Resolved]
  - Paraesthesia [Unknown]
